FAERS Safety Report 16519793 (Version 1)
Quarter: 2019Q3

REPORT INFORMATION
  Report Type: Spontaneous
  Country: US (occurrence: US)
  Receive Date: 20190522
  Receipt Date: 20190522
  Transmission Date: 20191004
  Serious: Yes (Hospitalization)
  Sender: FDA-Public Use
  Company Number: None

PATIENT
  Age: 72 Year
  Sex: Female

DRUGS (17)
  1. FORTEO [Suspect]
     Active Substance: TERIPARATIDE
     Indication: PRODUCT USED FOR UNKNOWN INDICATION
     Route: 058
     Dates: start: 20190228
  2. DICLOFENAC [Concomitant]
     Active Substance: DICLOFENAC
  3. FLUOXETINE [Concomitant]
     Active Substance: FLUOXETINE HYDROCHLORIDE
  4. OXYCODONE [Concomitant]
     Active Substance: OXYCODONE
  5. ALPRAZOLAM. [Concomitant]
     Active Substance: ALPRAZOLAM
  6. CYANOCOBALAM [Concomitant]
     Active Substance: CYANOCOBALAMIN
  7. LIDOCAINE. [Concomitant]
     Active Substance: LIDOCAINE
  8. TIZANDINE [Concomitant]
     Active Substance: TIZANIDINE
  9. PANTOPRAZOLE [Concomitant]
     Active Substance: PANTOPRAZOLE
  10. DOK [Concomitant]
     Active Substance: DOCUSATE SODIUM
  11. GABAPENTIN. [Concomitant]
     Active Substance: GABAPENTIN
  12. SUMATRIPTAN. [Concomitant]
     Active Substance: SUMATRIPTAN
  13. VALACYCLOVIR [Concomitant]
     Active Substance: VALACYCLOVIR HYDROCHLORIDE
  14. ZOLPIDEM [Concomitant]
     Active Substance: ZOLPIDEM TARTRATE
  15. VITAMIN D3 [Concomitant]
     Active Substance: CHOLECALCIFEROL
  16. FEROSUL [Concomitant]
  17. VIIBRYD [Concomitant]
     Active Substance: VILAZODONE HYDROCHLORIDE

REACTIONS (2)
  - Therapy cessation [None]
  - Road traffic accident [None]

NARRATIVE: CASE EVENT DATE: 20190320
